FAERS Safety Report 4412802-6 (Version None)
Quarter: 2004Q3

REPORT INFORMATION
  Report Type: 
  Country: None (occurrence: None)
  Receive Date: 20040730
  Receipt Date: 20040730
  Transmission Date: 20050211
  Serious: Yes (Other)
  Sender: FDA-Public Use
  Company Number: None

PATIENT
  Age: 48 Year
  Sex: Female
  Weight: 39 kg

DRUGS (9)
  1. ARALAST [Suspect]
     Indication: CONGENITAL EMPHYSEMA
     Dosage: 2340 MG IV ONCE A WEEK
     Route: 042
     Dates: start: 20040714
  2. ARALAST [Suspect]
     Indication: CONGENITAL EMPHYSEMA
     Dosage: 2340 MG IV ONCE A WEEK
     Route: 042
     Dates: start: 20040721
  3. ARALAST [Suspect]
     Indication: CONGENITAL EMPHYSEMA
     Dosage: 2340 MG IV ONCE A WEEK
     Route: 042
     Dates: start: 20040728
  4. ARALAST [Suspect]
     Indication: CONGENITAL EMPHYSEMA
     Dosage: 2340 MG IV ONCE A WEEK
     Route: 042
     Dates: start: 20040804
  5. ALBUTEROL [Concomitant]
  6. ADVAIR [Concomitant]
  7. THEOPHYLLINE [Concomitant]
  8. EFFEXOR [Concomitant]
  9. CLONAZEPAM [Concomitant]

REACTIONS (2)
  - COUGH [None]
  - PHARMACEUTICAL PRODUCT COMPLAINT [None]
